FAERS Safety Report 25267109 (Version 2)
Quarter: 2025Q2

REPORT INFORMATION
  Report Type: Report from Study
  Country: US (occurrence: US)
  Receive Date: 20250505
  Receipt Date: 20250513
  Transmission Date: 20250716
  Serious: Yes (Other)
  Sender: ACADIA PHARMACEUTICALS
  Company Number: US-ACADIA PHARMACEUTICALS INC.-ACA-2025-PIM-004967

PATIENT
  Age: 67 Year
  Sex: Female

DRUGS (6)
  1. NUPLAZID [Suspect]
     Active Substance: PIMAVANSERIN TARTRATE
     Indication: Psychotic disorder
     Dosage: 34 MILLIGRAM, QD
     Route: 048
     Dates: start: 202503
  2. RYTARY [Concomitant]
     Active Substance: CARBIDOPA\LEVODOPA
  3. CALCITRIOL [Concomitant]
     Active Substance: CALCITRIOL
  4. METHADONE [Concomitant]
     Active Substance: METHADONE HYDROCHLORIDE
  5. NESTREX [Concomitant]
  6. Dion [Concomitant]

REACTIONS (4)
  - Hip fracture [Unknown]
  - Hip arthroplasty [Unknown]
  - Walking aid user [Unknown]
  - Fall [Not Recovered/Not Resolved]

NARRATIVE: CASE EVENT DATE: 20250305
